FAERS Safety Report 6347113-5 (Version None)
Quarter: 2009Q3

REPORT INFORMATION
  Report Type: 
  Country: None (occurrence: None)
  Receive Date: 20090910
  Receipt Date: 20090831
  Transmission Date: 20100115
  Serious: Yes (Hospitalization)
  Sender: FDA-Public Use
  Company Number: JP-PFIZER INC-2009257342

PATIENT
  Age: 24 Year

DRUGS (3)
  1. ZITHROMAX [Suspect]
     Dosage: 500 MG/DAILY
     Route: 048
  2. ROCEPHIN [Suspect]
  3. LEVOFLOXACIN [Concomitant]
     Route: 048

REACTIONS (1)
  - COLITIS [None]
